FAERS Safety Report 5734267-4 (Version None)
Quarter: 2008Q2

REPORT INFORMATION
  Report Type: 
  Country: None (occurrence: None)
  Receive Date: 20080512
  Receipt Date: 20080505
  Transmission Date: 20081010
  Serious: Yes (Other)
  Sender: FDA-Public Use
  Company Number: DE-JNJFOC-20080500579

PATIENT
  Sex: Female
  Weight: 65 kg

DRUGS (52)
  1. HALDOL [Suspect]
     Route: 048
  2. HALDOL [Suspect]
     Indication: SCHIZOPHRENIA, PARANOID TYPE
     Route: 048
  3. RISPERDAL [Suspect]
     Route: 048
  4. RISPERDAL [Suspect]
     Route: 048
  5. RISPERDAL [Suspect]
     Indication: SCHIZOPHRENIA, PARANOID TYPE
     Route: 048
  6. PERAZIN [Suspect]
     Route: 048
  7. PERAZIN [Suspect]
     Indication: SCHIZOPHRENIA, PARANOID TYPE
     Route: 048
  8. PERAZIN [Suspect]
     Route: 048
  9. AKINETON [Concomitant]
     Route: 048
  10. LORAZEPAM [Concomitant]
     Route: 048
  11. LORAZEPAM [Concomitant]
     Route: 048
  12. LORAZEPAM [Concomitant]
     Route: 048
  13. LORAZEPAM [Concomitant]
     Route: 048
  14. LORAZEPAM [Concomitant]
     Route: 048
  15. LORAZEPAM [Concomitant]
     Route: 048
  16. LORAZEPAM [Concomitant]
     Route: 048
  17. LORAZEPAM [Concomitant]
     Route: 048
  18. LORAZEPAM [Concomitant]
     Route: 048
  19. LORAZEPAM [Concomitant]
     Route: 048
  20. LORAZEPAM [Concomitant]
     Route: 048
  21. LORAZEPAM [Concomitant]
     Route: 048
  22. LORAZEPAM [Concomitant]
     Route: 048
  23. LORAZEPAM [Concomitant]
     Route: 048
  24. LORAZEPAM [Concomitant]
     Route: 048
  25. LORAZEPAM [Concomitant]
     Route: 048
  26. TRUXAL [Concomitant]
     Route: 048
  27. TRUXAL [Concomitant]
     Route: 048
  28. TRUXAL [Concomitant]
     Route: 048
  29. TRUXAL [Concomitant]
     Route: 048
  30. TRUXAL [Concomitant]
     Route: 048
  31. TRUXAL [Concomitant]
     Route: 048
  32. TRUXAL [Concomitant]
     Route: 048
  33. TRUXAL [Concomitant]
     Route: 048
  34. TRUXAL [Concomitant]
     Route: 048
  35. TRUXAL [Concomitant]
     Route: 048
  36. TRUXAL [Concomitant]
     Route: 048
  37. TRUXAL [Concomitant]
     Route: 048
  38. ACETAMINOPHEN [Concomitant]
     Route: 048
  39. ACETAMINOPHEN [Concomitant]
     Route: 048
  40. ACETAMINOPHEN [Concomitant]
     Route: 048
  41. ACETAMINOPHEN [Concomitant]
     Route: 048
  42. ACETAMINOPHEN [Concomitant]
     Route: 048
  43. MAGNESIUM VERLA [Concomitant]
     Route: 048
  44. MAGNESIUM VERLA [Concomitant]
     Route: 048
  45. MAGNESIUM VERLA [Concomitant]
     Route: 048
  46. MAGNESIUM VERLA [Concomitant]
     Route: 048
  47. BALDRIAN [Concomitant]
     Route: 048
  48. DIAZEPAM [Concomitant]
     Route: 048
  49. DIAZEPAM [Concomitant]
     Route: 048
  50. DIAZEPAM [Concomitant]
     Route: 048
  51. ATOSIL [Concomitant]
     Route: 048
  52. ATOSIL [Concomitant]
     Route: 048

REACTIONS (1)
  - AGRANULOCYTOSIS [None]
